FAERS Safety Report 4335340-8 (Version None)
Quarter: 2004Q2

REPORT INFORMATION
  Report Type: 
  Country: None (occurrence: None)
  Receive Date: 20040409
  Receipt Date: 20030108
  Transmission Date: 20050107
  Serious: Yes (Hospitalization)
  Sender: FDA-Public Use
  Company Number: PHBS2003JP00627

PATIENT
  Age: 40 Year
  Sex: Male
  Weight: 65 kg

DRUGS (7)
  1. HALOPERIDOL [Concomitant]
     Dosage: 12 MG/DAY
  2. BIPERIDEN HYDROCHLORIDE TAB [Concomitant]
     Dosage: 4 MG/DAY
  3. LEVOMEPROMAZINE [Concomitant]
     Dosage: 175 MG/DAY
  4. FLUNITRAZEPAM [Concomitant]
     Dosage: 4 MG/DAY
  5. PROMETHAZINE HCL [Concomitant]
     Dosage: 20 MG/DAY
  6. VOLTAREN [Suspect]
     Dosage: 25 MG, ONCE/SINGLE
     Route: 054
     Dates: start: 20010612, end: 20010612
  7. LITHIUM CARBONATE [Suspect]
     Indication: DYSTONIA
     Dosage: 400 MG/DAY
     Dates: start: 20010501

REACTIONS (15)
  - ANOREXIA [None]
  - BLOOD PRESSURE DECREASED [None]
  - C-REACTIVE PROTEIN INCREASED [None]
  - DEPRESSED LEVEL OF CONSCIOUSNESS [None]
  - DRUG INTERACTION [None]
  - HEART RATE INCREASED [None]
  - INFLAMMATION [None]
  - INTUBATION [None]
  - MOUTH BREATHING [None]
  - NEUTROPHIL COUNT INCREASED [None]
  - OXYGEN SATURATION DECREASED [None]
  - RED BLOOD CELL SEDIMENTATION RATE INCREASED [None]
  - RESPIRATORY DISTRESS [None]
  - THERAPEUTIC AGENT TOXICITY [None]
  - WHITE BLOOD CELL COUNT INCREASED [None]
